FAERS Safety Report 8176221-1 (Version None)
Quarter: 2012Q1

REPORT INFORMATION
  Report Type: 
  Country: None (occurrence: None)
  Receive Date: 20120301
  Receipt Date: 20120223
  Transmission Date: 20120608
  Serious: Yes (Other)
  Sender: FDA-Public Use
  Company Number: US-JNJFOC-20120211234

PATIENT
  Age: 51 Year
  Sex: Female

DRUGS (1)
  1. LEVAQUIN [Suspect]
     Indication: BRONCHITIS
     Route: 065
     Dates: start: 20090101

REACTIONS (2)
  - TENOSYNOVITIS [None]
  - BURSITIS [None]
